FAERS Safety Report 5247165-X (Version None)
Quarter: 2007Q1

REPORT INFORMATION
  Report Type: 
  Country: None (occurrence: None)
  Receive Date: 20070221
  Receipt Date: 20070205
  Transmission Date: 20070707
  Serious: Yes (Hospitalization)
  Sender: FDA-Public Use
  Company Number: B0458447A

PATIENT
  Age: 3 Year
  Sex: Female

DRUGS (1)
  1. LANOXIN [Suspect]

REACTIONS (8)
  - ACCIDENTAL DRUG INTAKE BY CHILD [None]
  - ATRIAL FIBRILLATION [None]
  - ATRIAL FLUTTER [None]
  - ATRIOVENTRICULAR BLOCK COMPLETE [None]
  - CONDUCTION DISORDER [None]
  - ELECTROCARDIOGRAM PR PROLONGATION [None]
  - THERAPEUTIC AGENT TOXICITY [None]
  - VENTRICULAR EXTRASYSTOLES [None]
